FAERS Safety Report 17233044 (Version 5)
Quarter: 2020Q2

REPORT INFORMATION
  Report Type: Report from Study
  Country: US (occurrence: US)
  Receive Date: 20200104
  Receipt Date: 20200605
  Transmission Date: 20200713
  Serious: No
  Sender: FDA-Public Use
  Company Number: NVSC2019US085219

PATIENT
  Sex: Male

DRUGS (3)
  1. AFINITOR [Suspect]
     Active Substance: EVEROLIMUS
     Indication: MALIGNANT NEOPLASM OF RENAL PELVIS
     Dosage: 2.5 MG, QD
     Route: 048
     Dates: start: 20191129
  2. LENVIMA [Suspect]
     Active Substance: LENVATINIB
     Indication: MALIGNANT NEOPLASM OF RENAL PELVIS
     Dosage: 12 MG, QD
     Route: 065
  3. LENVIMA [Suspect]
     Active Substance: LENVATINIB
     Dosage: 8 MG, QD
     Route: 048
     Dates: start: 202003

REACTIONS (7)
  - Paraesthesia [Unknown]
  - Urine flow decreased [Unknown]
  - Faeces pale [Unknown]
  - Fatigue [Not Recovered/Not Resolved]
  - Mouth swelling [Unknown]
  - Pollakiuria [Unknown]
  - Abdominal pain [Recovered/Resolved]
